FAERS Safety Report 22154910 (Version 1)
Quarter: 2023Q1

REPORT INFORMATION
  Report Type: Other
  Country: JP (occurrence: JP)
  Receive Date: 20230330
  Receipt Date: 20230330
  Transmission Date: 20230417
  Serious: Yes (Other)
  Sender: FDA-Public Use
  Company Number: JP-CHUGAI-2023010890

PATIENT
  Age: 74 Year
  Sex: Female

DRUGS (1)
  1. ACTEMRA [Suspect]
     Active Substance: TOCILIZUMAB
     Indication: Polymyalgia rheumatica
     Dosage: 162 MG, ONCE EVERY 10 DAYS
     Route: 058
     Dates: start: 2021

REACTIONS (5)
  - Cataract [Unknown]
  - Glaucoma [Unknown]
  - Visual impairment [Unknown]
  - Insomnia [Unknown]
  - Off label use [Unknown]
